FAERS Safety Report 25295668 (Version 1)
Quarter: 2025Q2

REPORT INFORMATION
  Report Type: Spontaneous
  Country: US (occurrence: US)
  Receive Date: 20250511
  Receipt Date: 20250511
  Transmission Date: 20250717
  Serious: No
  Sender: SANOFI AVENTIS
  Company Number: US-SA-2025SA131472

PATIENT
  Age: 46 Year
  Sex: Female

DRUGS (16)
  1. REZUROCK [Suspect]
     Active Substance: BELUMOSUDIL
     Indication: Chronic graft versus host disease
     Dosage: 200 MG, QD
     Route: 048
     Dates: start: 202504
  2. BACLOFEN [Concomitant]
     Active Substance: BACLOFEN
  3. BACTRIM [Concomitant]
     Active Substance: SULFAMETHOXAZOLE\TRIMETHOPRIM
  4. CELEXA [Concomitant]
     Active Substance: CITALOPRAM HYDROBROMIDE
  5. DIALYVITE [Concomitant]
     Active Substance: ASCORBIC ACID\BIOTIN\CALCIUM PANTOTHENATE\COBALAMIN\FOLIC ACID\NIACINAMIDE\PYRIDOXINE HYDROCHLORIDE\
  6. CRESEMBA [Concomitant]
     Active Substance: ISAVUCONAZONIUM SULFATE
  7. VALACYCLOVIR [Concomitant]
     Active Substance: VALACYCLOVIR HYDROCHLORIDE
  8. TACROLIMUS [Concomitant]
     Active Substance: TACROLIMUS
  9. SYMBICORT [Concomitant]
     Active Substance: BUDESONIDE\FORMOTEROL FUMARATE DIHYDRATE
  10. POTASSIUM [Concomitant]
     Active Substance: POTASSIUM
  11. PREDNISONE [Concomitant]
     Active Substance: PREDNISONE
  12. JAKAFI [Concomitant]
     Active Substance: RUXOLITINIB
  13. MONTELUKAST [Concomitant]
     Active Substance: MONTELUKAST
  14. GABAPENTIN [Concomitant]
     Active Substance: GABAPENTIN
  15. FAMOTIDINE [Concomitant]
     Active Substance: FAMOTIDINE
  16. PENICILLIN V POTASSIUM [Concomitant]
     Active Substance: PENICILLIN V POTASSIUM

REACTIONS (1)
  - Fatigue [Recovering/Resolving]

NARRATIVE: CASE EVENT DATE: 20250101
